FAERS Safety Report 21174861 (Version 3)
Quarter: 2023Q1

REPORT INFORMATION
  Report Type: Spontaneous
  Country: US (occurrence: US)
  Receive Date: 20220805
  Receipt Date: 20230215
  Transmission Date: 20230418
  Serious: Yes (Hospitalization, Other)
  Sender: FDA-Public Use
  Company Number: US-UCBSA-2022042942

PATIENT
  Sex: Female
  Weight: 47.166 kg

DRUGS (1)
  1. CIMZIA [Suspect]
     Active Substance: CERTOLIZUMAB PEGOL
     Indication: Ankylosing spondylitis
     Dosage: 400 MILLIGRAM (2 SYRINGES, 200MG/ML SYRINGE KIT), EV 4 WEEKS
     Route: 058
     Dates: start: 202202

REACTIONS (2)
  - Laparoscopy [Unknown]
  - Dental care [Unknown]
